FAERS Safety Report 12553851 (Version 1)
Quarter: 2016Q3

REPORT INFORMATION
  Report Type: Spontaneous
  Country: GB (occurrence: GB)
  Receive Date: 20160713
  Receipt Date: 20160713
  Transmission Date: 20161109
  Serious: Yes (Hospitalization)
  Sender: FDA-Public Use
  Company Number: GB-BAUSCH-BL-2016-015876

PATIENT
  Sex: Male

DRUGS (1)
  1. TROPICAMIDE. [Suspect]
     Active Substance: TROPICAMIDE
     Indication: PUPIL DILATION PROCEDURE
     Route: 047

REACTIONS (3)
  - Eye pain [Not Recovered/Not Resolved]
  - Blindness transient [Recovering/Resolving]
  - Eye disorder [Not Recovered/Not Resolved]
